FAERS Safety Report 4678690-8 (Version None)
Quarter: 2005Q2

REPORT INFORMATION
  Report Type: 
  Country: None (occurrence: None)
  Receive Date: 20050527
  Receipt Date: 20050513
  Transmission Date: 20051028
  Serious: Yes (Other)
  Sender: FDA-Public Use
  Company Number: 2005078343

PATIENT
  Age: 64 Year
  Sex: Male

DRUGS (8)
  1. LIPITOR [Suspect]
     Indication: BLOOD CHOLESTEROL INCREASED
     Dosage: ORAL
     Route: 048
  2. DETROL LA [Concomitant]
  3. CELEBREX [Concomitant]
  4. BEXTRA [Concomitant]
  5. MOBIC [Concomitant]
  6. VIOXX [Concomitant]
  7. ALL OTHER THERAPEUTIC PRODUCTS (ALL OTHER THERAPEUTIC PRODUCTS) [Concomitant]
  8. SINEMET [Concomitant]

REACTIONS (4)
  - BLOOD CHOLESTEROL INCREASED [None]
  - PARKINSON'S DISEASE [None]
  - POLLAKIURIA [None]
  - URINARY RETENTION [None]
